FAERS Safety Report 22057602 (Version 2)
Quarter: 2023Q1

REPORT INFORMATION
  Report Type: Spontaneous
  Country: DZ (occurrence: DZ)
  Receive Date: 20230303
  Receipt Date: 20230313
  Transmission Date: 20230418
  Serious: Yes (Hospitalization, Other)
  Sender: FDA-Public Use
  Company Number: DZ-002147023-NVSC2023DZ043925

PATIENT
  Age: 16 Year
  Sex: Male

DRUGS (3)
  1. OMNITROPE [Suspect]
     Active Substance: SOMATROPIN
     Indication: Growth hormone deficiency
     Dosage: 5 MILLIGRAMS/ 1.5 MILLILITER
     Route: 065
  2. OMNITROPE [Suspect]
     Active Substance: SOMATROPIN
     Dosage: 0.035 MG/KG
     Route: 058
     Dates: start: 20221114, end: 20230223
  3. TESTOSTERONE [Concomitant]
     Active Substance: TESTOSTERONE
     Indication: Product used for unknown indication
     Dosage: 250 MG
     Route: 030

REACTIONS (6)
  - Nervous system disorder [Unknown]
  - Muscle spasms [Unknown]
  - Arthralgia [Unknown]
  - Epilepsy [Recovering/Resolving]
  - Cerebral venous thrombosis [Recovering/Resolving]
  - Localised infection [Unknown]

NARRATIVE: CASE EVENT DATE: 20230201
